FAERS Safety Report 10112045 (Version 1)
Quarter: 2014Q2

REPORT INFORMATION
  Report Type: Report from Study
  Country: TR (occurrence: TR)
  Receive Date: 20140425
  Receipt Date: 20140425
  Transmission Date: 20141212
  Serious: Yes (Other)
  Sender: FDA-Public Use
  Company Number: TR-US-EMD SERONO, INC.-7283892

PATIENT
  Sex: Female
  Weight: 68 kg

DRUGS (3)
  1. REBIF [Suspect]
     Indication: MULTIPLE SCLEROSIS
  2. BRUFEN                             /00109201/ [Suspect]
     Indication: ANALGESIC THERAPY
  3. COLECALCIFEROL [Suspect]
     Indication: VITAMIN D DEFICIENCY

REACTIONS (1)
  - Asthma [Not Recovered/Not Resolved]
